FAERS Safety Report 5853686-9 (Version None)
Quarter: 2008Q3

REPORT INFORMATION
  Report Type: 
  Country: None (occurrence: None)
  Receive Date: 20080822
  Receipt Date: 20080813
  Transmission Date: 20090109
  Serious: Yes (Other)
  Sender: FDA-Public Use
  Company Number: PHHY2008ZA17943

PATIENT
  Age: 8 Year
  Sex: Male

DRUGS (1)
  1. RITALIN [Suspect]
     Dosage: 10 MG IN MORNING AND 5 MG DURING SCHOOL TIME

REACTIONS (5)
  - ABNORMAL BEHAVIOUR [None]
  - ARTHRALGIA [None]
  - DEPRESSION [None]
  - MOANING [None]
  - TREATMENT NONCOMPLIANCE [None]
